FAERS Safety Report 22629501 (Version 1)
Quarter: 2023Q2

REPORT INFORMATION
  Report Type: Spontaneous
  Country: CA (occurrence: CA)
  Receive Date: 20230622
  Receipt Date: 20230622
  Transmission Date: 20230722
  Serious: Yes (Other)
  Sender: FDA-Public Use
  Company Number: CA-AMERICAN REGENT INC-2023001492

PATIENT
  Sex: Male

DRUGS (1)
  1. VENOFER [Suspect]
     Active Substance: IRON SUCROSE
     Indication: Product used for unknown indication
     Dosage: 300 MILLIGRAM IN NS 250
     Route: 042
     Dates: start: 20230615, end: 20230615

REACTIONS (5)
  - Urticaria [Unknown]
  - Generalised oedema [Unknown]
  - Pruritus [Unknown]
  - Incorrect product administration duration [Unknown]
  - Product complaint [Unknown]

NARRATIVE: CASE EVENT DATE: 20230615
